FAERS Safety Report 7536284-0 (Version None)
Quarter: 2011Q2

REPORT INFORMATION
  Report Type: 
  Country: None (occurrence: None)
  Receive Date: 20110608
  Receipt Date: 20110608
  Transmission Date: 20111010
  Serious: Yes (Other)
  Sender: FDA-Public Use
  Company Number: None

PATIENT
  Sex: Female
  Weight: 80.7403 kg

DRUGS (2)
  1. PRILOSEC [Suspect]
     Indication: GASTROOESOPHAGEAL REFLUX DISEASE
     Dosage: PRILOSEC 40MG DAILY BY MOUTH
     Route: 048
     Dates: start: 20101201, end: 20110401
  2. PRILOSEC [Suspect]
     Indication: BARRETT'S OESOPHAGUS
     Dosage: PRILOSEC 40MG DAILY BY MOUTH
     Route: 048
     Dates: start: 20101201, end: 20110401

REACTIONS (2)
  - DRUG INEFFECTIVE [None]
  - RASH [None]
